FAERS Safety Report 6235797-1 (Version None)
Quarter: 2009Q2

REPORT INFORMATION
  Report Type: 
  Country: None (occurrence: None)
  Receive Date: 20090619
  Receipt Date: 20090608
  Transmission Date: 20091009
  Serious: Yes (Other)
  Sender: FDA-Public Use
  Company Number: CN-PFIZER INC-2009217808

PATIENT

DRUGS (1)
  1. SULPERAZON [Suspect]
     Indication: PNEUMONIA ASPIRATION
     Dosage: UNK
     Route: 042

REACTIONS (1)
  - SHOCK [None]
